FAERS Safety Report 21918625 (Version 1)
Quarter: 2023Q1

REPORT INFORMATION
  Report Type: Spontaneous
  Country: US (occurrence: US)
  Receive Date: 20230127
  Receipt Date: 20230127
  Transmission Date: 20230417
  Serious: No
  Sender: FDA-Public Use
  Company Number: US-TAKEDA-2023TUS009208

PATIENT
  Sex: Female
  Weight: 98 kg

DRUGS (2)
  1. MOTEGRITY [Suspect]
     Active Substance: PRUCALOPRIDE SUCCINATE
     Indication: Constipation
     Dosage: 2 MILLIGRAM, QD
     Route: 065
     Dates: start: 20190821
  2. METFORMIN [Concomitant]
     Active Substance: METFORMIN HYDROCHLORIDE

REACTIONS (3)
  - Product use issue [Unknown]
  - Product dose omission issue [Unknown]
  - No adverse event [Unknown]
